FAERS Safety Report 19245891 (Version 5)
Quarter: 2021Q4

REPORT INFORMATION
  Report Type: Spontaneous
  Country: US (occurrence: US)
  Receive Date: 20210511
  Receipt Date: 20211025
  Transmission Date: 20220303
  Serious: Yes (Hospitalization)
  Sender: FDA-Public Use
  Company Number: US-TEVA-2021-US-1908479

PATIENT
  Age: 38 Year
  Sex: Female

DRUGS (6)
  1. TREPROSTINIL [Suspect]
     Active Substance: TREPROSTINIL
     Indication: Pulmonary arterial hypertension
     Dosage: 32 NG/KG/MIN, CONTINUOUS
     Route: 042
     Dates: start: 20210421
  2. TREPROSTINIL [Suspect]
     Active Substance: TREPROSTINIL
     Dosage: 34 NG/KG/MIN, CONTINUOUS
     Route: 042
     Dates: start: 202104
  3. TREPROSTINIL [Suspect]
     Active Substance: TREPROSTINIL
     Dosage: 40 NG/KG/MIN, CONTINUOUS
     Route: 042
     Dates: start: 20210421
  4. TREPROSTINIL [Suspect]
     Active Substance: TREPROSTINIL
     Dosage: 54NG/KG/MIN
     Route: 042
     Dates: start: 20210409, end: 20210727
  5. OPSUMIT [Suspect]
     Active Substance: MACITENTAN
     Route: 065
  6. SILDENAFIL [Concomitant]
     Active Substance: SILDENAFIL
     Route: 065

REACTIONS (8)
  - Catheter site inflammation [Unknown]
  - Abdominal discomfort [Unknown]
  - Pain [Unknown]
  - Hypokinesia [Unknown]
  - Diarrhoea [Unknown]
  - Myalgia [Unknown]
  - Therapy interrupted [Unknown]
  - Arthralgia [Unknown]

NARRATIVE: CASE EVENT DATE: 20210101
